FAERS Safety Report 21040317 (Version 1)
Quarter: 2022Q3

REPORT INFORMATION
  Report Type: Spontaneous
  Country: US (occurrence: None)
  Receive Date: 20220704
  Receipt Date: 20220704
  Transmission Date: 20221026
  Serious: No
  Sender: FDA-Public Use
  Company Number: 2022A170536

PATIENT
  Age: 30900 Day
  Sex: Male
  Weight: 61.7 kg

DRUGS (1)
  1. SYMBICORT [Suspect]
     Active Substance: BUDESONIDE\FORMOTEROL FUMARATE DIHYDRATE
     Indication: Emphysema
     Dosage: 160/4.5 UG, TWICE A DAY.
     Route: 055
     Dates: start: 20220428

REACTIONS (2)
  - Insomnia [Unknown]
  - Product label issue [Unknown]

NARRATIVE: CASE EVENT DATE: 20220428
